FAERS Safety Report 21296203 (Version 1)
Quarter: 2022Q3

REPORT INFORMATION
  Report Type: Spontaneous
  Country: US (occurrence: None)
  Receive Date: 20220906
  Receipt Date: 20220906
  Transmission Date: 20221027
  Serious: Yes (Hospitalization)
  Sender: FDA-Public Use
  Company Number: US-ROCHE-3172142

PATIENT
  Age: 73 Year
  Sex: Female

DRUGS (1)
  1. RITUXAN [Suspect]
     Active Substance: RITUXIMAB
     Indication: Eosinophilic granulomatosis with polyangiitis
     Dosage: UNKNOWN
     Route: 065
     Dates: start: 20220812

REACTIONS (4)
  - Blood pressure increased [Recovered/Resolved]
  - Dizziness [Recovered/Resolved]
  - Pollakiuria [Recovered/Resolved]
  - Off label use [Unknown]

NARRATIVE: CASE EVENT DATE: 20220812
